FAERS Safety Report 17720775 (Version 2)
Quarter: 2020Q4

REPORT INFORMATION
  Report Type: Spontaneous
  Country: US (occurrence: US)
  Receive Date: 20200428
  Receipt Date: 20201015
  Transmission Date: 20210113
  Serious: Yes (Hospitalization, Other)
  Sender: FDA-Public Use
  Company Number: US-ROCHE-2484422

PATIENT
  Age: 71 Year
  Sex: Male
  Weight: 79.45 kg

DRUGS (12)
  1. CAPECITABINE. [Concomitant]
     Active Substance: CAPECITABINE
     Indication: COLORECTAL CANCER METASTATIC
     Dosage: 2 TABLETS IN AM AND 1 TABLET IN EVENING
     Route: 048
     Dates: start: 20191008
  2. IRINOTECAN [Concomitant]
     Active Substance: IRINOTECAN
  3. OXALIPLATIN. [Concomitant]
     Active Substance: OXALIPLATIN
  4. AVASTIN [Suspect]
     Active Substance: BEVACIZUMAB
     Route: 042
     Dates: start: 201905, end: 201910
  5. CAPECITABINE. [Concomitant]
     Active Substance: CAPECITABINE
     Dosage: ONGOING: NO, THREE TIMES A DAY TO ONCE PER DAY
     Route: 048
     Dates: start: 202009, end: 202009
  6. AVASTIN [Suspect]
     Active Substance: BEVACIZUMAB
     Route: 042
     Dates: start: 202004
  7. CAPECITABINE. [Concomitant]
     Active Substance: CAPECITABINE
     Route: 048
  8. FLUOROURACIL. [Concomitant]
     Active Substance: FLUOROURACIL
  9. FOLFIRI [Concomitant]
     Active Substance: FLUOROURACIL\IRINOTECAN\LEUCOVORIN
     Indication: COLORECTAL CANCER METASTATIC
     Dosage: ONGOING: NO
     Route: 042
     Dates: start: 202004, end: 202009
  10. FOLINIC ACID [Concomitant]
     Active Substance: LEUCOVORIN
  11. AVASTIN [Suspect]
     Active Substance: BEVACIZUMAB
     Indication: COLORECTAL CANCER METASTATIC
     Route: 042
     Dates: start: 201904
  12. FOLFOX [Concomitant]
     Active Substance: FLUOROURACIL\LEUCOVORIN CALCIUM\OXALIPLATIN
     Indication: COLORECTAL CANCER METASTATIC
     Dosage: ONGOING NO
     Route: 042
     Dates: start: 202005, end: 202010

REACTIONS (8)
  - Device related thrombosis [Unknown]
  - Metastases to central nervous system [Recovering/Resolving]
  - Epistaxis [Recovered/Resolved]
  - Arthralgia [Unknown]
  - Neutrophil count decreased [Recovering/Resolving]
  - Cerebrovascular accident [Recovered/Resolved]
  - White blood cell count decreased [Unknown]
  - Arthralgia [Recovered/Resolved]

NARRATIVE: CASE EVENT DATE: 201908
